FAERS Safety Report 7027221-6 (Version None)
Quarter: 2010Q3

REPORT INFORMATION
  Report Type: 
  Country: None (occurrence: None)
  Receive Date: 20100930
  Receipt Date: 20100914
  Transmission Date: 20110219
  Serious: Yes (Death, Life-Threatening, Hospitalization, Other)
  Sender: FDA-Public Use
  Company Number: 2010003909

PATIENT
  Age: 89 Year
  Sex: Male
  Weight: 70 kg

DRUGS (10)
  1. ERLOTINIB HYDROCHLORIDE [Suspect]
     Indication: NON-SMALL CELL LUNG CANCER
     Dosage: 150 MG, QD, ORAL
     Route: 048
     Dates: start: 20081024, end: 20081201
  2. AMLODIPINE [Concomitant]
  3. PRAVASTATIN [Concomitant]
  4. RENOVACE (ENALAPRIL MALEATE) [Concomitant]
  5. APRINDINE HYDROCHLORIDE (APRINDINE HYDROCHLORIDE) [Concomitant]
  6. ASPIRIN [Concomitant]
  7. LOPERAMIDE HCL [Concomitant]
  8. TIMOLOL MALEATE [Concomitant]
  9. TRUSOPT [Concomitant]
  10. HAYALEIN (HYALURONATE SODIUM) [Concomitant]

REACTIONS (7)
  - BLOOD BILIRUBIN INCREASED [None]
  - BLOOD CREATININE INCREASED [None]
  - BLOOD UREA INCREASED [None]
  - HEPATIC FUNCTION ABNORMAL [None]
  - PLATELET COUNT DECREASED [None]
  - STOMATITIS [None]
  - TOXIC SKIN ERUPTION [None]
